FAERS Safety Report 4999476-0 (Version None)
Quarter: 2006Q2

REPORT INFORMATION
  Report Type: 
  Country: None (occurrence: None)
  Receive Date: 20060509
  Receipt Date: 20060425
  Transmission Date: 20061013
  Serious: No
  Sender: FDA-Public Use
  Company Number: TPA2006A00714

PATIENT
  Age: 56 Year
  Sex: Female
  Weight: 45.8133 kg

DRUGS (11)
  1. ROZEREM [Suspect]
     Dosage: SEE IMAGE
     Route: 048
     Dates: start: 20060128, end: 20060128
  2. ROZEREM [Suspect]
     Dosage: SEE IMAGE
     Route: 048
     Dates: start: 20060216, end: 20060216
  3. ROZEREM [Suspect]
     Dosage: SEE IMAGE
     Route: 048
     Dates: start: 20060129
  4. KLONOPIN (CLONAZEPAM) (1 MILLIGRAM) [Concomitant]
  5. TOPAMAX (TOPIRAMATE) (25 MILLIGRAM) [Concomitant]
  6. IMIPRAMINE HYDROCHLORIDE (IMIPRAMINE HYDROCHLORIDE) (12.5 MILLIGRAM) [Concomitant]
  7. MELATONIN (MELATONIN) [Concomitant]
  8. COZAAR (LOSARTAN POTASSIUM) (100 MILLIGRAM) [Concomitant]
  9. NEXIUM (ESOMEPRAZOLE MAGNESIUM) (40 MILLIGRAM) [Concomitant]
  10. CELEXA [Concomitant]
  11. RITALIN (METHYLPHENIDATE HYDROCHLORIDE) (1.25 MILLIGRAM) [Concomitant]

REACTIONS (2)
  - DRUG INEFFECTIVE [None]
  - INCORRECT DOSE ADMINISTERED [None]
